FAERS Safety Report 7828296-4 (Version None)
Quarter: 2011Q4

REPORT INFORMATION
  Report Type: 
  Country: None (occurrence: None)
  Receive Date: 20111020
  Receipt Date: 20111014
  Transmission Date: 20120403
  Serious: No
  Sender: FDA-Public Use
  Company Number: US-PFIZER INC-2011248016

PATIENT
  Sex: Male
  Weight: 111 kg

DRUGS (6)
  1. FISH OIL [Concomitant]
     Dosage: 1000 MG, UNK
     Route: 048
  2. LISINOPRIL [Concomitant]
     Dosage: 20 MG, UNK
     Route: 048
  3. ACETYLSALICYLIC ACID [Concomitant]
     Dosage: 325 MG, UNK
     Route: 048
  4. SIMVASTATIN [Concomitant]
     Dosage: 10 MG, UNK
     Route: 048
  5. VITAMIN B COMPLEX CAP [Concomitant]
     Dosage: UNK
     Route: 048
  6. SUTENT [Suspect]
     Dosage: 50 MG, 1X/DAY, 4 WEEKS ON/2 WEEKS OFF
     Route: 048

REACTIONS (2)
  - CHEILITIS [None]
  - DIARRHOEA [None]
